FAERS Safety Report 21766308 (Version 1)
Quarter: 2022Q4

REPORT INFORMATION
  Report Type: Report from Study
  Country: US (occurrence: US)
  Receive Date: 20221222
  Receipt Date: 20221222
  Transmission Date: 20230112
  Serious: Yes (Hospitalization)
  Sender: FDA-Public Use
  Company Number: US-ABBVIE-4246827

PATIENT
  Sex: Male

DRUGS (1)
  1. VENCLEXTA [Suspect]
     Active Substance: VENETOCLAX
     Indication: Juvenile chronic myelomonocytic leukaemia
     Dosage: TIME INTERVAL: 0.33333333 DAYS
     Route: 048

REACTIONS (2)
  - Full blood count decreased [Not Recovered/Not Resolved]
  - Pyrexia [Not Recovered/Not Resolved]
